FAERS Safety Report 4338548-0 (Version None)
Quarter: 2004Q2

REPORT INFORMATION
  Report Type: 
  Country: None (occurrence: None)
  Receive Date: 20040409
  Receipt Date: 20040325
  Transmission Date: 20050107
  Serious: Yes (Hospitalization)
  Sender: FDA-Public Use
  Company Number: 2004-IT-00058IT

PATIENT
  Age: 80 Year
  Sex: Male

DRUGS (1)
  1. TIOTROPIUM (TIOTROPIUM BROMIDE) (KAI) (TIOTROPIUM) [Suspect]
     Indication: CHRONIC OBSTRUCTIVE AIRWAYS DISEASE
     Dosage: 18 MCG (18 MCG, 1 IN 1 D) IH
     Route: 055
     Dates: start: 20031027

REACTIONS (2)
  - COUGH [None]
  - DYSPNOEA [None]
